FAERS Safety Report 19065433 (Version 5)
Quarter: 2021Q2

REPORT INFORMATION
  Report Type: Report from Study
  Country: None (occurrence: US)
  Receive Date: 20210327
  Receipt Date: 20210623
  Transmission Date: 20210717
  Serious: Yes (Hospitalization)
  Sender: FDA-Public Use
  Company Number: US-ABBVIE-21K-163-3791637-00

PATIENT
  Age: 61 Year
  Sex: Male
  Weight: 62.65 kg

DRUGS (5)
  1. HUMIRA [Suspect]
     Active Substance: ADALIMUMAB
     Indication: PSORIASIS
     Dosage: CITRATE FREE
     Route: 058
     Dates: start: 2018
  2. ELIQUIS [Interacting]
     Active Substance: APIXABAN
     Indication: ANTICOAGULANT THERAPY
     Route: 065
     Dates: end: 2021
  3. DILANTIN [Interacting]
     Active Substance: PHENYTOIN
     Indication: SEIZURE
     Route: 065
     Dates: start: 20210205
  4. HUMIRA [Suspect]
     Active Substance: ADALIMUMAB
     Dosage: CITRATE FREE
     Route: 058
     Dates: start: 202003
  5. LEVAQUIN [Concomitant]
     Active Substance: LEVOFLOXACIN
     Indication: SEIZURE

REACTIONS (11)
  - Amnesia [Recovered/Resolved]
  - Memory impairment [Recovered/Resolved]
  - Injury [Recovered/Resolved]
  - Dyspnoea [Recovered/Resolved]
  - Chronic obstructive pulmonary disease [Recovered/Resolved]
  - Fall [Recovered/Resolved]
  - Abdominal discomfort [Unknown]
  - Drug interaction [Unknown]
  - Epistaxis [Unknown]
  - Pharyngitis streptococcal [Recovered/Resolved]
  - Hospitalisation [Unknown]

NARRATIVE: CASE EVENT DATE: 202102
